FAERS Safety Report 6393902-0 (Version None)
Quarter: 2009Q4

REPORT INFORMATION
  Report Type: 
  Country: None (occurrence: None)
  Receive Date: 20091008
  Receipt Date: 20090917
  Transmission Date: 20100525
  Serious: Yes (Hospitalization, Other)
  Sender: FDA-Public Use
  Company Number: SI-AVENTIS-200721613GDDC

PATIENT
  Age: 210 Month
  Sex: Male

DRUGS (5)
  1. ARAVA [Suspect]
     Route: 048
     Dates: start: 20060321, end: 20070118
  2. ARAVA [Suspect]
     Route: 048
  3. REMICADE [Suspect]
     Route: 042
     Dates: start: 20060221, end: 20061221
  4. CALCIUM CARBONATE [Concomitant]
     Dates: start: 20050501
  5. VITAMIN D3 [Concomitant]
     Dates: start: 20050501

REACTIONS (8)
  - ANTINUCLEAR ANTIBODY POSITIVE [None]
  - DERMATITIS ALLERGIC [None]
  - DRUG INTERACTION [None]
  - HEPATIC ENZYME INCREASED [None]
  - LEUKOPENIA [None]
  - OFF LABEL USE [None]
  - THROMBOCYTOPENIA [None]
  - TRANSAMINASES INCREASED [None]
